FAERS Safety Report 18496905 (Version 1)
Quarter: 2020Q4

REPORT INFORMATION
  Report Type: Spontaneous
  Country: DE (occurrence: DE)
  Receive Date: 20201112
  Receipt Date: 20201112
  Transmission Date: 20210114
  Serious: Yes (Death, Life-Threatening, Other)
  Sender: FDA-Public Use
  Company Number: DE-DSJP-DSE-2020-133664

PATIENT
  Age: 81 Year
  Sex: Female
  Weight: 69 kg

DRUGS (1)
  1. LIXIANA [Suspect]
     Active Substance: EDOXABAN TOSYLATE
     Indication: ATRIAL FIBRILLATION
     Dosage: 30 MG, QD
     Route: 048

REACTIONS (5)
  - Hepatorenal syndrome [Unknown]
  - Acute hepatic failure [Fatal]
  - Pulmonary oedema [Unknown]
  - Multiple organ dysfunction syndrome [Fatal]
  - Cardiac failure [Unknown]

NARRATIVE: CASE EVENT DATE: 2020
